FAERS Safety Report 5303220-7 (Version None)
Quarter: 2007Q2

REPORT INFORMATION
  Report Type: 
  Country: None (occurrence: None)
  Receive Date: 20070417
  Receipt Date: 20070417
  Transmission Date: 20071010
  Serious: Yes (Death)
  Sender: FDA-Public Use
  Company Number: None

PATIENT
  Sex: Female
  Weight: 99.5 kg

DRUGS (3)
  1. NOLVADEX [Suspect]
     Dosage: 740 MG
  2. CYCLOPHOSPHAMIDE [Suspect]
     Dosage: 5200 MG
  3. DOXORUBICIN HYDROCHLORIDE [Suspect]
     Dosage: 520 MG

REACTIONS (1)
  - LUNG HYPERINFLATION [None]
